FAERS Safety Report 7098466-4 (Version None)
Quarter: 2010Q4

REPORT INFORMATION
  Report Type: 
  Country: None (occurrence: None)
  Receive Date: 20101104
  Receipt Date: 20101020
  Transmission Date: 20110411
  Serious: Yes (Other)
  Sender: FDA-Public Use
  Company Number: DSJ-2010-18910

PATIENT
  Age: 62 Year
  Sex: Male

DRUGS (1)
  1. OLMETEC (OLMESARTAN MEDOXOMIL) (TABLETS) (OLMESARTAN MEDOXOMIL) [Suspect]
     Indication: PRODUCT USED FOR UNKNOWN INDICATION
     Dosage: 20 MG, PER ORAL
     Route: 048
     Dates: start: 20090701, end: 20090801

REACTIONS (1)
  - DRUG ERUPTION [None]
